FAERS Safety Report 4311291-X (Version None)
Quarter: 2004Q1

REPORT INFORMATION
  Report Type: 
  Country: None (occurrence: None)
  Receive Date: 20040304
  Receipt Date: 20031205
  Transmission Date: 20041129
  Serious: Yes (Other)
  Sender: FDA-Public Use
  Company Number: IE-GLAXOSMITHKLINE-B0317651A

PATIENT
  Age: 47 Year
  Sex: Female
  Weight: 70 kg

DRUGS (10)
  1. DARAPRIM [Suspect]
     Indication: TOXOPLASMOSIS
     Dosage: 50MG PER DAY
     Route: 048
     Dates: start: 20031113, end: 20040107
  2. ESOMEPRAZOLE [Concomitant]
     Dosage: 40MG PER DAY
     Route: 048
  3. METOCLOPRAMIDE [Concomitant]
     Dosage: 20MG FOUR TIMES PER DAY
     Route: 048
     Dates: start: 20031124, end: 20040105
  4. VALACYCLOVIR HCL [Concomitant]
     Dosage: 500MG PER DAY
     Route: 048
  5. AMBISOME [Concomitant]
     Indication: FUNGAL INFECTION
     Dosage: 225MG PER DAY
     Dates: start: 20031113, end: 20040107
  6. TACROLIMUS [Concomitant]
     Indication: PROPHYLAXIS AGAINST TRANSPLANT REJECTION
     Dosage: 1.5MG TWICE PER DAY
     Route: 048
     Dates: end: 20031229
  7. DEMECLOCYCLINE [Concomitant]
     Indication: BONE MARROW TRANSPLANT
     Dosage: 300MG TWICE PER DAY
     Route: 048
     Dates: start: 20031123, end: 20031201
  8. SULPHADIAZINE [Concomitant]
     Indication: TOXOPLASMOSIS
     Dosage: 2G FOUR TIMES PER DAY
     Route: 042
     Dates: start: 20031114, end: 20040107
  9. FOLINIC ACID [Concomitant]
     Indication: VITAMIN SUPPLEMENTATION
     Dosage: 15MG TWICE PER DAY
     Route: 048
     Dates: start: 20031112, end: 20040107
  10. PREDNISOLONE [Concomitant]
     Dosage: 20MG PER DAY
     Route: 048
     Dates: start: 20031126

REACTIONS (1)
  - ALVEOLITIS [None]
